FAERS Safety Report 7023012-0 (Version None)
Quarter: 2010Q3

REPORT INFORMATION
  Report Type: 
  Country: None (occurrence: None)
  Receive Date: 20100930
  Receipt Date: 20100913
  Transmission Date: 20110219
  Serious: Yes (Hospitalization)
  Sender: FDA-Public Use
  Company Number: US-BAYER-201010368NA

PATIENT
  Age: 25 Year
  Sex: Female
  Weight: 68 kg

DRUGS (5)
  1. YASMIN [Suspect]
     Indication: POLYCYSTIC OVARIES
     Route: 048
     Dates: start: 20031201, end: 20080101
  2. BENZAMYCIN [Concomitant]
  3. IBUPROFEN [Concomitant]
  4. PENICILLIN VK [Concomitant]
  5. ASPIRIN [Concomitant]

REACTIONS (7)
  - DEEP VEIN THROMBOSIS [None]
  - DIZZINESS [None]
  - DYSPNOEA [None]
  - LOSS OF CONSCIOUSNESS [None]
  - PULMONARY EMBOLISM [None]
  - PULMONARY HYPERTENSION [None]
  - SYNCOPE [None]
